FAERS Safety Report 18168844 (Version 1)
Quarter: 2020Q3

REPORT INFORMATION
  Report Type: Spontaneous
  Country: US (occurrence: US)
  Receive Date: 20200818
  Receipt Date: 20200818
  Transmission Date: 20201103
  Serious: No
  Sender: FDA-Public Use
  Company Number: None

PATIENT
  Age: 31 Year
  Sex: Female

DRUGS (1)
  1. TALTZ [Suspect]
     Active Substance: IXEKIZUMAB
     Route: 058
     Dates: start: 202007

REACTIONS (4)
  - Erythema [None]
  - Rash [None]
  - Infection [None]
  - Injection site warmth [None]

NARRATIVE: CASE EVENT DATE: 20200817
